FAERS Safety Report 23307809 (Version 2)
Quarter: 2024Q1

REPORT INFORMATION
  Report Type: Spontaneous
  Country: JP (occurrence: JP)
  Receive Date: 20231218
  Receipt Date: 20240208
  Transmission Date: 20240410
  Serious: Yes (Other)
  Sender: FDA-Public Use
  Company Number: JP-BAYER-2023A175728

PATIENT
  Age: 40 Year
  Sex: Female

DRUGS (2)
  1. MIRENA [Suspect]
     Active Substance: LEVONORGESTREL
     Indication: Heavy menstrual bleeding
     Dosage: 20?G/DAY
     Route: 015
     Dates: start: 2011
  2. MIRENA [Suspect]
     Active Substance: LEVONORGESTREL
     Indication: Dysmenorrhoea

REACTIONS (9)
  - Embedded device [Unknown]
  - Uterine cervix canal atresia [Unknown]
  - Intrauterine infection [None]
  - Unexpected vaginal bleeding on hormonal IUD [None]
  - Amenorrhoea [None]
  - Endometrial hypoplasia [Unknown]
  - Unexpected vaginal bleeding on hormonal IUD [Recovered/Resolved]
  - Abdominal discomfort [None]
  - Device use issue [None]

NARRATIVE: CASE EVENT DATE: 20231206
